FAERS Safety Report 19088711 (Version 2)
Quarter: 2021Q4

REPORT INFORMATION
  Report Type: Report from Study
  Country: UG (occurrence: UG)
  Receive Date: 20210403
  Receipt Date: 20211231
  Transmission Date: 20220303
  Serious: Yes (Other)
  Sender: FDA-Public Use
  Company Number: UG-CIPLA LTD.-2021UG02490

PATIENT

DRUGS (6)
  1. LOPINAVIR\RITONAVIR [Suspect]
     Active Substance: LOPINAVIR\RITONAVIR
     Indication: HIV infection
     Dosage: 7 DOSAGE FORM, BID (280MG/70 MG BID DAILY)
     Route: 048
     Dates: start: 20160802, end: 20161019
  2. ABACAVIR\LAMIVUDINE [Suspect]
     Active Substance: ABACAVIR\LAMIVUDINE
     Indication: HIV infection
     Dosage: 5 DOSAGE FORM, BID (300MG/150MG BID DAILY)
     Route: 048
     Dates: start: 20160802, end: 20161019
  3. AMOXICILLIN [Concomitant]
     Active Substance: AMOXICILLIN
     Indication: Upper respiratory tract infection
     Dosage: 250 (UNITS UNKNOWN), TID
     Route: 065
  4. CETIRIZINE [Concomitant]
     Active Substance: CETIRIZINE HYDROCHLORIDE
     Indication: Product used for unknown indication
     Dosage: 10 (UNK), QD
     Route: 065
     Dates: start: 2016
  5. GRISEOFULVIN [Concomitant]
     Active Substance: GRISEOFULVIN
     Indication: Tinea capitis
     Dosage: 250 (UNITS UNKNOWN), BID
     Route: 065
     Dates: start: 2016
  6. COTRIMOXAZOLE [Concomitant]
     Active Substance: SULFAMETHOXAZOLE\TRIMETHOPRIM
     Indication: Antifungal prophylaxis
     Dosage: 480 (UNITS UNKNOWN), QD
     Route: 065
     Dates: start: 2014

REACTIONS (4)
  - Seizure [Recovered/Resolved]
  - Tinea capitis [Recovered/Resolved]
  - Dermatitis [Recovered/Resolved]
  - Abdominal pain [Recovered/Resolved]

NARRATIVE: CASE EVENT DATE: 20160805
